FAERS Safety Report 12701779 (Version 1)
Quarter: 2016Q3

REPORT INFORMATION
  Report Type: Spontaneous
  Country: US (occurrence: US)
  Receive Date: 20160831
  Receipt Date: 20160831
  Transmission Date: 20161109
  Serious: No
  Sender: FDA-Public Use
  Company Number: US-JAZZ-2016-US-007454

PATIENT
  Age: 54 Year
  Sex: Female
  Weight: 68.27 kg

DRUGS (10)
  1. XYREM [Suspect]
     Active Substance: SODIUM OXYBATE
     Indication: NARCOLEPSY
     Dosage: 2.25 G, BID
     Route: 048
     Dates: start: 201604, end: 201604
  2. METOPROLOL SUCCINATE. [Concomitant]
     Active Substance: METOPROLOL SUCCINATE
  3. AMANTADINE [Concomitant]
     Active Substance: AMANTADINE
  4. PROGESTERONE. [Concomitant]
     Active Substance: PROGESTERONE
  5. XYREM [Suspect]
     Active Substance: SODIUM OXYBATE
     Dosage: 3 G, BID
     Route: 048
     Dates: start: 201604
  6. KEPPRA [Concomitant]
     Active Substance: LEVETIRACETAM
     Indication: EPILEPSY
  7. ESTRADIOL. [Concomitant]
     Active Substance: ESTRADIOL
  8. ALEVE [Concomitant]
     Active Substance: NAPROXEN SODIUM
  9. ANTIDEPRESSANTS [Concomitant]
     Active Substance: UNSPECIFIED INGREDIENT
     Indication: DEPRESSION
  10. ASPIRIN. [Concomitant]
     Active Substance: ASPIRIN

REACTIONS (5)
  - Peripheral swelling [Unknown]
  - Condition aggravated [Unknown]
  - Visual impairment [Not Recovered/Not Resolved]
  - Gout [Unknown]
  - Mood altered [Unknown]

NARRATIVE: CASE EVENT DATE: 201604
